FAERS Safety Report 16331584 (Version 1)
Quarter: 2019Q2

REPORT INFORMATION
  Report Type: Spontaneous
  Country: US (occurrence: US)
  Receive Date: 20190517
  Receipt Date: 20190517
  Transmission Date: 20190711
  Serious: No
  Sender: FDA-Public Use
  Company Number: None

PATIENT
  Age: 51 Year
  Sex: Female
  Weight: 49.5 kg

DRUGS (1)
  1. ZOLPIDEM TARTRATE 10 MG [Suspect]
     Active Substance: ZOLPIDEM TARTRATE
     Indication: INSOMNIA
     Dosage: ?          QUANTITY:1 TABLET(S);?
     Route: 048
     Dates: start: 20190403, end: 20190503

REACTIONS (5)
  - Anxiety [None]
  - Drug ineffective [None]
  - Insomnia [None]
  - Restlessness [None]
  - Product substitution issue [None]

NARRATIVE: CASE EVENT DATE: 20190503
